FAERS Safety Report 13706259 (Version 1)
Quarter: 2017Q2

REPORT INFORMATION
  Report Type: Spontaneous
  Country: US (occurrence: US)
  Receive Date: 20170630
  Receipt Date: 20170630
  Transmission Date: 20170830
  Serious: No
  Sender: FDA-Public Use
  Company Number: US-PFIZER INC-2017279329

PATIENT
  Sex: Female

DRUGS (1)
  1. LYRICA [Suspect]
     Active Substance: PREGABALIN
     Dosage: 50 MG, UNK (ONE, 50MG)

REACTIONS (7)
  - Lip discolouration [Unknown]
  - Lip pain [Unknown]
  - Lip exfoliation [Unknown]
  - Lip dry [Unknown]
  - Paraesthesia oral [Unknown]
  - Lip swelling [Recovering/Resolving]
  - Chapped lips [Unknown]
